FAERS Safety Report 16946356 (Version 1)
Quarter: 2019Q4

REPORT INFORMATION
  Report Type: Spontaneous
  Country: TW (occurrence: TW)
  Receive Date: 20191022
  Receipt Date: 20191022
  Transmission Date: 20200122
  Serious: Yes (Other)
  Sender: FDA-Public Use
  Company Number: TW-GLAXOSMITHKLINE-TW2019GSK186243

PATIENT
  Age: 59 Year
  Sex: Male

DRUGS (4)
  1. ACITRETIN. [Suspect]
     Active Substance: ACITRETIN
     Indication: PSORIASIS
     Dosage: 50 MG, 1D
     Route: 048
  2. PEMBROLIZUMAB. [Concomitant]
     Active Substance: PEMBROLIZUMAB
     Indication: IMMUNE SYSTEM DISORDER
     Dosage: 100 MG, UNK
     Route: 042
  3. CYCLOSPORINE. [Suspect]
     Active Substance: CYCLOSPORINE
     Indication: PSORIASIS
     Dosage: 200 MG, 1D
  4. DERMOVATE [Concomitant]
     Active Substance: CLOBETASOL
     Indication: PSORIASIS
     Dosage: UNK
     Route: 061

REACTIONS (8)
  - Skin lesion [Recovered/Resolved]
  - Blood creatinine increased [Unknown]
  - Pruritus [Recovered/Resolved]
  - Myalgia [Recovered/Resolved]
  - Erythema [Recovered/Resolved]
  - Malignant neoplasm progression [Unknown]
  - Drug intolerance [Unknown]
  - Asthenia [Recovered/Resolved]
